FAERS Safety Report 9242882 (Version 7)
Quarter: 2013Q4

REPORT INFORMATION
  Report Type: Spontaneous
  Country: US (occurrence: US)
  Receive Date: 20130419
  Receipt Date: 20131108
  Transmission Date: 20140711
  Serious: Yes (Hospitalization, Other)
  Sender: FDA-Public Use
  Company Number: US-009507513-1304USA006774

PATIENT
  Sex: Female
  Weight: 58.96 kg

DRUGS (4)
  1. FOSAMAX [Suspect]
     Indication: OSTEOPOROSIS
     Dosage: 70 MG, UNK
     Route: 048
     Dates: end: 20110101
  2. FOSAMAX [Suspect]
     Indication: OSTEOPENIA
  3. CALCIUM (UNSPECIFIED) [Concomitant]
     Indication: OSTEOPENIA
     Dosage: 1200-1500 MG QD
     Dates: start: 2000
  4. ADVAIR [Concomitant]
     Indication: ASTHMA
     Dosage: UNK
     Dates: start: 1995

REACTIONS (64)
  - Anxiety disorder [Unknown]
  - Hypertension [Not Recovered/Not Resolved]
  - Depression [Unknown]
  - Tooth infection [Unknown]
  - Vocal cord paresis [Unknown]
  - Malaise [Unknown]
  - Dysgeusia [Unknown]
  - Dizziness [Recovered/Resolved]
  - Oedema peripheral [Unknown]
  - Nausea [Unknown]
  - Headache [Unknown]
  - Arthralgia [Unknown]
  - Vocal cord disorder [Unknown]
  - Periodontitis [Unknown]
  - Endodontic procedure [Unknown]
  - Jaw operation [Unknown]
  - Breast cancer stage I [Unknown]
  - Knee arthroplasty [Unknown]
  - Knee arthroplasty [Unknown]
  - Humerus fracture [Unknown]
  - Bone graft [Unknown]
  - Knee operation [Unknown]
  - Knee operation [Unknown]
  - Osteonecrosis of jaw [Unknown]
  - Jaw operation [Unknown]
  - Depression [Unknown]
  - Anxiety [Unknown]
  - Tooth extraction [Unknown]
  - Oral infection [Unknown]
  - Dental caries [Unknown]
  - Impaired healing [Unknown]
  - Gingivitis [Unknown]
  - Abscess [Unknown]
  - Wrist fracture [Unknown]
  - Oral surgery [Unknown]
  - Adverse event [Unknown]
  - Adverse event [Unknown]
  - Wrist fracture [Unknown]
  - Type 2 diabetes mellitus [Unknown]
  - Cardiac murmur [Unknown]
  - Cataract [Unknown]
  - Breast lump removal [Unknown]
  - Liver function test abnormal [Unknown]
  - Hyponatraemia [Unknown]
  - Hypokalaemia [Unknown]
  - Mitral valve incompetence [Unknown]
  - Hepatitis [Unknown]
  - Bicuspid aortic valve [Unknown]
  - Left atrial dilatation [Unknown]
  - Aortic arteriosclerosis [Unknown]
  - Ligament laxity [Unknown]
  - Osteoarthritis [Unknown]
  - Dysarthria [Unknown]
  - Joint stiffness [Unknown]
  - Dysphonia [Unknown]
  - Akathisia [Unknown]
  - Osteoarthritis [Unknown]
  - Gait disturbance [Unknown]
  - Hypoaesthesia [Unknown]
  - Abscess oral [Unknown]
  - Osteoarthritis [Unknown]
  - Infection [Unknown]
  - Blood potassium decreased [Unknown]
  - Cellulitis [Recovering/Resolving]
